FAERS Safety Report 4590756-X (Version None)
Quarter: 2005Q1

REPORT INFORMATION
  Report Type: 
  Country: None (occurrence: None)
  Receive Date: 20050224
  Receipt Date: 20050217
  Transmission Date: 20050727
  Serious: Yes (Life-Threatening, Hospitalization, Disabling)
  Sender: FDA-Public Use
  Company Number: US-MERCK-0502USA02279

PATIENT
  Age: 56 Year
  Sex: Female

DRUGS (6)
  1. VIOXX [Suspect]
     Indication: MONARTHRITIS
     Route: 048
     Dates: start: 20030101, end: 20040701
  2. VIOXX [Suspect]
     Route: 048
     Dates: start: 20040701, end: 20040701
  3. FUROSEMIDE [Concomitant]
     Route: 065
  4. HYZAAR [Concomitant]
     Route: 065
  5. CRESTOR [Concomitant]
     Route: 065
  6. BIAXIN [Concomitant]
     Route: 065

REACTIONS (1)
  - TACHYCARDIA [None]
